FAERS Safety Report 20245091 (Version 1)
Quarter: 2021Q4

REPORT INFORMATION
  Report Type: Report from Study
  Country: FR (occurrence: FR)
  Receive Date: 20211229
  Receipt Date: 20211229
  Transmission Date: 20220303
  Serious: Yes (Hospitalization, Other)
  Sender: FDA-Public Use
  Company Number: FR-TAKEDA-FR201733037

PATIENT
  Age: 50 Year
  Sex: Male
  Weight: 72.5 kg

DRUGS (12)
  1. TEDUGLUTIDE [Suspect]
     Active Substance: TEDUGLUTIDE
     Indication: Short-bowel syndrome
     Dosage: 0.05 MILLIGRAM/KILOGRAM, QD
     Route: 065
  2. TEDUGLUTIDE [Suspect]
     Active Substance: TEDUGLUTIDE
     Indication: Short-bowel syndrome
     Dosage: 0.05 MILLIGRAM/KILOGRAM, QD
     Route: 065
  3. TEDUGLUTIDE [Suspect]
     Active Substance: TEDUGLUTIDE
     Indication: Short-bowel syndrome
     Dosage: 0.05 MILLIGRAM/KILOGRAM, QD
     Route: 065
  4. TEDUGLUTIDE [Suspect]
     Active Substance: TEDUGLUTIDE
     Indication: Short-bowel syndrome
     Dosage: 0.05 MILLIGRAM/KILOGRAM, QD
     Route: 065
  5. INNOHEP [Concomitant]
     Active Substance: TINZAPARIN SODIUM
     Indication: Thrombosis
  6. FLAGYL                             /00012501/ [Concomitant]
     Indication: Sepsis
  7. CLAFORAN                           /00497602/ [Concomitant]
     Indication: Sepsis
  8. AMIKLIN                            /00391001/ [Concomitant]
     Indication: Sepsis
  9. CHOLECALCIFEROL [Concomitant]
     Active Substance: CHOLECALCIFEROL
     Indication: Supplementation therapy
     Dosage: 100000 INTERNATIONAL UNIT, 2/MONTH
     Route: 048
     Dates: start: 20190319
  10. IMODIUM [Concomitant]
     Active Substance: LOPERAMIDE HYDROCHLORIDE
     Indication: Short-bowel syndrome
     Dosage: 2 MILLIGRAM, TID
     Route: 048
     Dates: start: 20190319
  11. VITAMIN B12 [Concomitant]
     Active Substance: CYANOCOBALAMIN
     Indication: Supplementation therapy
     Dosage: 2 DOSAGE FORM, 1/WEEK
     Route: 048
     Dates: start: 20190319
  12. POTASSIUM [Concomitant]
     Active Substance: POTASSIUM
     Indication: Supplementation therapy
     Dosage: 1 CAP, 6 TIMES A DAY
     Route: 048
     Dates: start: 20190319, end: 20190403

REACTIONS (5)
  - Malnutrition [Recovered/Resolved]
  - Device related infection [Recovered/Resolved]
  - Iron deficiency [Recovered/Resolved]
  - Hyperkaliuria [Recovered/Resolved]
  - Hypertriglyceridaemia [Not Recovered/Not Resolved]

NARRATIVE: CASE EVENT DATE: 20171204
